FAERS Safety Report 8162387 (Version 2)
Quarter: 2013Q1

REPORT INFORMATION
  Report Type: Report from Study
  Country: FR (occurrence: FR)
  Receive Date: 20110929
  Receipt Date: 20130225
  Transmission Date: 20140127
  Serious: Yes (Other)
  Sender: FDA-Public Use
  Company Number: PHHO2011FR15807

PATIENT
  Age: 54 Year
  Sex: Male
  Weight: 72 kg

DRUGS (1)
  1. NO TREATMENT RECEIVED [Suspect]
     Indication: GASTROINTESTINAL STROMAL TUMOUR
     Dosage: NO TREATMENT

REACTIONS (2)
  - Prostate cancer [Recovered/Resolved]
  - Second primary malignancy [Recovered/Resolved]
